FAERS Safety Report 11643697 (Version 2)
Quarter: 2015Q4

REPORT INFORMATION
  Report Type: Spontaneous
  Country: FR (occurrence: FR)
  Receive Date: 20151020
  Receipt Date: 20151103
  Transmission Date: 20160304
  Serious: Yes (Other)
  Sender: FDA-Public Use
  Company Number: FR-JNJFOC-20151010099

PATIENT
  Sex: Female

DRUGS (3)
  1. EPITOMAX [Suspect]
     Active Substance: TOPIRAMATE
     Indication: EPILEPSY
     Route: 048
     Dates: end: 20150921
  2. ADEPAL [Interacting]
     Active Substance: ETHINYL ESTRADIOL\LEVONORGESTREL
     Indication: ORAL CONTRACEPTION
     Dosage: 21 DAYS OUT OF 28 DAYS
     Route: 048
     Dates: start: 20150711, end: 20150921
  3. LAMICTAL [Concomitant]
     Active Substance: LAMOTRIGINE
     Indication: EPILEPSY
     Route: 048

REACTIONS (2)
  - Exposure during pregnancy [Recovered/Resolved]
  - Drug interaction [Recovered/Resolved]
